FAERS Safety Report 21238713 (Version 1)
Quarter: 2022Q3

REPORT INFORMATION
  Report Type: Spontaneous
  Country: US (occurrence: US)
  Receive Date: 20220822
  Receipt Date: 20220822
  Transmission Date: 20221027
  Serious: Yes (Hospitalization, Disabling, Other)
  Sender: FDA-Public Use
  Company Number: US-AMNEAL PHARMACEUTICALS-2022-AMRX-02304

PATIENT
  Sex: Female

DRUGS (2)
  1. FLUDROCORTISONE ACETATE [Suspect]
     Active Substance: FLUDROCORTISONE ACETATE
     Indication: Product used for unknown indication
     Dosage: 0.1 MG
     Route: 048
  2. HYDROCORTISONE [Suspect]
     Active Substance: HYDROCORTISONE
     Indication: Product used for unknown indication
     Dosage: 2 TABLETS, 1 /DAY
     Route: 048

REACTIONS (80)
  - Cerebrovascular accident [Not Recovered/Not Resolved]
  - Paralysis [Unknown]
  - Necrosis [Unknown]
  - Aggression [Not Recovered/Not Resolved]
  - Anxiety [Not Recovered/Not Resolved]
  - Dry eye [Not Recovered/Not Resolved]
  - Dry mouth [Not Recovered/Not Resolved]
  - Hypoaesthesia [Not Recovered/Not Resolved]
  - Paraesthesia [Not Recovered/Not Resolved]
  - Tremor [Not Recovered/Not Resolved]
  - Oropharyngeal pain [Not Recovered/Not Resolved]
  - Restlessness [Not Recovered/Not Resolved]
  - Dyspnoea [Not Recovered/Not Resolved]
  - Speech disorder [Not Recovered/Not Resolved]
  - Gait disturbance [Not Recovered/Not Resolved]
  - Back pain [Not Recovered/Not Resolved]
  - Cough [Not Recovered/Not Resolved]
  - Asthenia [Not Recovered/Not Resolved]
  - Chest pain [Unknown]
  - Pain in extremity [Unknown]
  - Burning sensation [Unknown]
  - Musculoskeletal stiffness [Unknown]
  - Mania [Unknown]
  - Delirium [Unknown]
  - Confusional state [Unknown]
  - Panic attack [Unknown]
  - Abdominal pain [Unknown]
  - Musculoskeletal chest pain [Unknown]
  - Vision blurred [Unknown]
  - Abdominal discomfort [Unknown]
  - Chills [Unknown]
  - Chest discomfort [Unknown]
  - Constipation [Unknown]
  - Urine output decreased [Unknown]
  - Joint range of motion decreased [Unknown]
  - Visual acuity reduced [Unknown]
  - Fear of death [Unknown]
  - Dysphagia [Unknown]
  - Eye pain [Unknown]
  - Heart rate irregular [Unknown]
  - Pyrexia [Unknown]
  - Dry skin [Unknown]
  - Breath odour [Unknown]
  - Dyspepsia [Unknown]
  - Hallucination [Unknown]
  - Fat tissue increased [None]
  - Appetite disorder [Unknown]
  - Thirst [Unknown]
  - Pollakiuria [Unknown]
  - Dyspnoea [Unknown]
  - Decreased appetite [Unknown]
  - Arthralgia [Unknown]
  - Muscle spasms [Unknown]
  - Myalgia [Unknown]
  - Nausea [Unknown]
  - Blood glucose decreased [Unknown]
  - Ear discomfort [Unknown]
  - Pruritus [Unknown]
  - Weight decreased [Unknown]
  - Wheezing [Unknown]
  - Disorientation [Unknown]
  - Chromaturia [Unknown]
  - Dizziness [Not Recovered/Not Resolved]
  - Presyncope [Unknown]
  - Rash [Unknown]
  - Weight increased [Unknown]
  - Skin discolouration [Unknown]
  - Mental status changes [Unknown]
  - Nail discolouration [Unknown]
  - Impaired healing [Unknown]
  - Muscular weakness [Unknown]
  - Abdominal distension [Unknown]
  - Erythema [Unknown]
  - Hyperhidrosis [Unknown]
  - Depression [Unknown]
  - Menstrual disorder [Unknown]
  - Mood altered [Not Recovered/Not Resolved]
  - Insomnia [Unknown]
  - Seizure [Unknown]
  - Headache [Not Recovered/Not Resolved]
